FAERS Safety Report 14605794 (Version 2)
Quarter: 2018Q1

REPORT INFORMATION
  Report Type: Spontaneous
  Country: JP (occurrence: JP)
  Receive Date: 20180306
  Receipt Date: 20180329
  Transmission Date: 20180509
  Serious: Yes (Hospitalization)
  Sender: FDA-Public Use
  Company Number: JP-B.I. PHARMACEUTICALS,INC./RIDGEFIELD-2018-NB-001009

PATIENT
  Age: 61 Year
  Sex: Female

DRUGS (2)
  1. ERLOTINIB HYDROCHLORIDE. [Concomitant]
     Active Substance: ERLOTINIB HYDROCHLORIDE
     Indication: LUNG ADENOCARCINOMA
     Route: 065
  2. GILOTRIF [Suspect]
     Active Substance: AFATINIB
     Indication: LUNG ADENOCARCINOMA
     Route: 048

REACTIONS (3)
  - Haemorrhagic tumour necrosis [Unknown]
  - Liver injury [Unknown]
  - Metastases to uterus [Unknown]
